FAERS Safety Report 7882437-1 (Version None)
Quarter: 2011Q4

REPORT INFORMATION
  Report Type: 
  Country: None (occurrence: None)
  Receive Date: 20111101
  Receipt Date: 20110614
  Transmission Date: 20120403
  Serious: No
  Sender: FDA-Public Use
  Company Number: US-AMGEN-USASP2011030508

PATIENT
  Age: 43 Year
  Sex: Female
  Weight: 47.619 kg

DRUGS (2)
  1. CELEBREX [Concomitant]
  2. ENBREL [Suspect]
     Dosage: 50 MG, QWK

REACTIONS (1)
  - DERMATITIS CONTACT [None]
